FAERS Safety Report 7743504-6 (Version None)
Quarter: 2011Q3

REPORT INFORMATION
  Report Type: 
  Country: None (occurrence: None)
  Receive Date: 20110912
  Receipt Date: 20110609
  Transmission Date: 20111222
  Serious: Yes (Other)
  Sender: FDA-Public Use
  Company Number: US-ABBOTT-11P-163-0731386-00

PATIENT
  Age: 15 Year
  Sex: Male

DRUGS (2)
  1. DEPAKOTE [Suspect]
     Indication: CONVULSION
     Dosage: 875MG/DAY DIVIDED INTO TWO DOSES; AM/PM
     Dates: start: 20020101
  2. L-CARNITINE [Concomitant]
     Indication: MALABSORPTION

REACTIONS (5)
  - CONVULSION [None]
  - SPEECH DISORDER [None]
  - CORTICAL DYSPLASIA [None]
  - BRADYPHRENIA [None]
  - CENTRAL NERVOUS SYSTEM LESION [None]
